FAERS Safety Report 6940221-7 (Version None)
Quarter: 2010Q3

REPORT INFORMATION
  Report Type: 
  Country: None (occurrence: None)
  Receive Date: 20100820
  Receipt Date: 20100809
  Transmission Date: 20110219
  Serious: Yes (Hospitalization)
  Sender: FDA-Public Use
  Company Number: DSA_43706_2010

PATIENT
  Age: 72 Year
  Sex: Female

DRUGS (12)
  1. ENALAPRIL MALEATE [Suspect]
     Indication: ESSENTIAL HYPERTENSION
     Dosage: (10 MG QD ORAL), (10 MG QD ORAL)
     Route: 048
     Dates: start: 20091201
  2. DICLOFENAC SODIUM [Suspect]
     Indication: GOUT
     Dosage: (DF ORAL)
     Route: 048
  3. METFORMIN HCL [Suspect]
     Indication: DIABETES MELLITUS
     Dosage: (3 GM/DAILY)
     Dates: end: 20091224
  4. ASPIRIN [Concomitant]
  5. VAGIFEM [Concomitant]
  6. NOVORAPID [Concomitant]
  7. INSULATARD /00646002/ [Concomitant]
  8. MONOKET [Concomitant]
  9. LEVOTHYROXINE SODIUM [Concomitant]
  10. SELOKENZOC [Concomitant]
  11. OMEPRAZOLE [Concomitant]
  12. SIMVASTATIN [Concomitant]

REACTIONS (7)
  - C-REACTIVE PROTEIN INCREASED [None]
  - DIALYSIS [None]
  - DYSPNOEA [None]
  - HYPERKALAEMIA [None]
  - LACTIC ACIDOSIS [None]
  - RED BLOOD CELL SEDIMENTATION RATE INCREASED [None]
  - RENAL FAILURE ACUTE [None]
